FAERS Safety Report 16087564 (Version 1)
Quarter: 2019Q1

REPORT INFORMATION
  Report Type: Spontaneous
  Country: CA (occurrence: CA)
  Receive Date: 20190319
  Receipt Date: 20190319
  Transmission Date: 20190418
  Serious: Yes (Other)
  Sender: FDA-Public Use
  Company Number: CA-JNJFOC-20190317605

PATIENT
  Age: 24 Month
  Sex: Male
  Weight: 15 kg

DRUGS (2)
  1. PREVNAR 13 [Suspect]
     Active Substance: PNEUMOCOCCAL 13-VALENT CONJUGATE VACCINE
     Indication: IMMUNISATION
     Dosage: FREQUENCY: ONCE
     Route: 030
  2. CHILDRENS TYLENOL [Suspect]
     Active Substance: ACETAMINOPHEN
     Indication: PROPHYLAXIS
     Route: 065

REACTIONS (10)
  - Cold sweat [Recovered/Resolved]
  - Hypersomnia [Recovered/Resolved]
  - Lethargy [Recovered/Resolved]
  - Muscle twitching [Recovered/Resolved]
  - Rash macular [Recovered/Resolved]
  - Balance disorder [Recovered/Resolved]
  - Decreased appetite [Recovered/Resolved]
  - Pyrexia [Recovered/Resolved]
  - Pallor [Recovered/Resolved]
  - Vomiting [Recovered/Resolved]
